FAERS Safety Report 16569898 (Version 2)
Quarter: 2019Q3

REPORT INFORMATION
  Report Type: Report from Study
  Country: IT (occurrence: IT)
  Receive Date: 20190715
  Receipt Date: 20190716
  Transmission Date: 20191004
  Serious: Yes (Other)
  Sender: FDA-Public Use
  Company Number: IT-TEVA-2019-IT-1076534

PATIENT
  Age: 56 Year
  Sex: Male

DRUGS (2)
  1. PROVISACOR 10 MG COMPRESSE RIVESTITE CON FILM [Concomitant]
  2. RYTMONORM [Suspect]
     Active Substance: PROPAFENONE
     Indication: ATRIAL FIBRILLATION
     Dosage: 2 DOSAGE FORM PER DAY
     Route: 048
     Dates: start: 20190315, end: 20190529

REACTIONS (2)
  - Atrial flutter [Recovered/Resolved]
  - Drug ineffective [Recovered/Resolved]

NARRATIVE: CASE EVENT DATE: 20190528
